FAERS Safety Report 4855271-4 (Version None)
Quarter: 2005Q4

REPORT INFORMATION
  Report Type: 
  Country: None (occurrence: None)
  Receive Date: 20051215
  Receipt Date: 20051209
  Transmission Date: 20060501
  Serious: Yes (Disabling, Other)
  Sender: FDA-Public Use
  Company Number: US-MERCK-0512USA01717

PATIENT
  Age: 53 Year
  Sex: Female

DRUGS (8)
  1. FOSAMAX [Suspect]
     Indication: OSTEOPOROSIS PROPHYLAXIS
     Route: 048
     Dates: start: 20020701
  2. ASPIRIN [Concomitant]
     Route: 065
  3. NEXIUM [Concomitant]
     Route: 065
  4. LEVOXYL [Concomitant]
     Route: 065
  5. PRAVACHOL [Concomitant]
     Route: 065
  6. ESTRATEST [Concomitant]
     Route: 065
  7. TRICOR [Concomitant]
     Route: 065
  8. VITAMIN E [Concomitant]
     Route: 065

REACTIONS (4)
  - BONE DISORDER [None]
  - DENTAL DISCOMFORT [None]
  - TOOTH DISORDER [None]
  - TOOTHACHE [None]
